FAERS Safety Report 20319025 (Version 1)
Quarter: 2022Q1

REPORT INFORMATION
  Report Type: Spontaneous
  Country: US (occurrence: US)
  Receive Date: 20220110
  Receipt Date: 20220110
  Transmission Date: 20220424
  Serious: No
  Sender: FDA-Public Use
  Company Number: US-009507513-2112USA006432

PATIENT
  Age: 48 Year
  Sex: Male

DRUGS (2)
  1. TEMODAR [Suspect]
     Active Substance: TEMOZOLOMIDE
     Indication: Pancreatic neuroendocrine tumour metastatic
     Dosage: UNK
  2. CAPECITABINE [Concomitant]
     Active Substance: CAPECITABINE
     Indication: Pancreatic neuroendocrine tumour metastatic
     Dosage: UNK

REACTIONS (1)
  - Product use in unapproved indication [Unknown]
